FAERS Safety Report 6205857-X (Version None)
Quarter: 2009Q2

REPORT INFORMATION
  Report Type: 
  Country: None (occurrence: None)
  Receive Date: 20090527
  Receipt Date: 20090504
  Transmission Date: 20091009
  Serious: No
  Sender: FDA-Public Use
  Company Number: US-ABBOTT-09P-163-0571497-00

PATIENT
  Sex: Female
  Weight: 88.53 kg

DRUGS (4)
  1. SIMCOR [Suspect]
     Indication: BLOOD CHOLESTEROL INCREASED
     Dosage: 500/20MG DAILY
     Route: 048
     Dates: start: 20090413, end: 20090413
  2. HUMALOG [Concomitant]
     Indication: DIABETES MELLITUS
  3. LANTUS [Concomitant]
     Indication: DIABETES MELLITUS
  4. METFORMIN HCL [Concomitant]
     Indication: DIABETES MELLITUS

REACTIONS (4)
  - FEELING HOT [None]
  - LIP SWELLING [None]
  - OEDEMA MOUTH [None]
  - URTICARIA [None]
